FAERS Safety Report 18221230 (Version 3)
Quarter: 2022Q2

REPORT INFORMATION
  Report Type: Spontaneous
  Country: GB (occurrence: GB)
  Receive Date: 20200902
  Receipt Date: 20220613
  Transmission Date: 20220721
  Serious: Yes (Other)
  Sender: FDA-Public Use
  Company Number: NVSC2020GB234972

PATIENT
  Age: 56 Year
  Sex: Female

DRUGS (1)
  1. METHOTREXATE [Suspect]
     Active Substance: METHOTREXATE
     Indication: Product used for unknown indication
     Dosage: UNK
     Route: 065

REACTIONS (10)
  - Intervertebral disc protrusion [Unknown]
  - Frustration tolerance decreased [Unknown]
  - Kidney infection [Unknown]
  - Back pain [Not Recovered/Not Resolved]
  - Mobility decreased [Recovering/Resolving]
  - Joint injury [Unknown]
  - Product use issue [Unknown]
  - Herpes zoster [Unknown]
  - Malaise [Unknown]
  - Pain in extremity [Unknown]
